FAERS Safety Report 8828206 (Version 1)
Quarter: 2012Q4

REPORT INFORMATION
  Report Type: 
  Country: BR (occurrence: BR)
  Receive Date: 20121008
  Receipt Date: 20121008
  Transmission Date: 20130627
  Serious: Yes (Death)
  Sender: FDA-Public Use
  Company Number: PHHY2011BR92830

PATIENT
  Sex: Male

DRUGS (1)
  1. AFINITOR [Suspect]
     Indication: HEPATIC NEOPLASM MALIGNANT
     Dosage: 1 DF, QD
     Route: 048

REACTIONS (6)
  - Multi-organ failure [Fatal]
  - General physical health deterioration [Unknown]
  - Pain [Unknown]
  - Asthenia [Unknown]
  - Oedema peripheral [Unknown]
  - Abdominal distension [Unknown]
